FAERS Safety Report 5647190-0 (Version None)
Quarter: 2008Q1

REPORT INFORMATION
  Report Type: 
  Country: None (occurrence: None)
  Receive Date: 20080228
  Receipt Date: 20080228
  Transmission Date: 20080703
  Serious: No
  Sender: FDA-Public Use
  Company Number: None

PATIENT
  Age: 49 Year
  Sex: Female
  Weight: 65.318 kg

DRUGS (1)
  1. ZOLPIDEM TARTRATE [Suspect]
     Indication: MIDDLE INSOMNIA
     Dosage: 1 TABLET PO USED THE NIGHT OF 02/20/2008
     Route: 048
     Dates: start: 20080220, end: 20080221

REACTIONS (2)
  - DRUG DEPENDENCE [None]
  - INSOMNIA [None]
